FAERS Safety Report 6540079-4 (Version None)
Quarter: 2010Q1

REPORT INFORMATION
  Report Type: 
  Country: None (occurrence: None)
  Receive Date: 20100115
  Receipt Date: 20091222
  Transmission Date: 20100710
  Serious: Yes (Other)
  Sender: FDA-Public Use
  Company Number: SE-SANOFI-AVENTIS-2010SA001926

PATIENT
  Age: 85 Year
  Sex: Male

DRUGS (2)
  1. LEUPRORELIN ACETATE [Suspect]
     Indication: PROSTATE CANCER
  2. LEUPRORELIN ACETATE [Suspect]
     Route: 058
     Dates: start: 20080124, end: 20091223

REACTIONS (2)
  - DRUG INEFFECTIVE [None]
  - MEMORY IMPAIRMENT [None]
